FAERS Safety Report 15882846 (Version 1)
Quarter: 2019Q1

REPORT INFORMATION
  Report Type: Spontaneous
  Country: CA (occurrence: CA)
  Receive Date: 20190129
  Receipt Date: 20190129
  Transmission Date: 20190417
  Serious: Yes (Hospitalization, Other)
  Sender: FDA-Public Use
  Company Number: CA-009507513-1901CAN009624

PATIENT
  Sex: Male

DRUGS (2)
  1. KEYTRUDA [Suspect]
     Active Substance: PEMBROLIZUMAB
     Indication: MALIGNANT MELANOMA
     Dosage: 1 DF
  2. KEYTRUDA [Suspect]
     Active Substance: PEMBROLIZUMAB
     Dosage: 1 DF

REACTIONS (7)
  - Systemic inflammatory response syndrome [Recovered/Resolved]
  - Drug effective for unapproved indication [Unknown]
  - Systemic inflammatory response syndrome [Recovering/Resolving]
  - Sepsis [Recovering/Resolving]
  - Product use in unapproved indication [Unknown]
  - Arthralgia [Unknown]
  - Sepsis [Recovered/Resolved]
